FAERS Safety Report 15555326 (Version 1)
Quarter: 2018Q4

REPORT INFORMATION
  Report Type: Spontaneous
  Country: DE (occurrence: DE)
  Receive Date: 20181026
  Receipt Date: 20181026
  Transmission Date: 20190205
  Serious: Yes (Congenital Anomaly)
  Sender: FDA-Public Use
  Company Number: DE-DRREDDYS-GER/GER/18/0104990

PATIENT
  Age: 1 Day
  Sex: Male
  Weight: 3.64 kg

DRUGS (5)
  1. AMOXICLAV [Concomitant]
     Active Substance: AMOXICILLIN\CLAVULANATE POTASSIUM
     Indication: BRONCHITIS
     Route: 064
     Dates: start: 20171111, end: 20171117
  2. PANTOPRAZOLE [Suspect]
     Active Substance: PANTOPRAZOLE
     Indication: GASTROOESOPHAGEAL REFLUX DISEASE
     Dosage: ALTERNATING WITH OMEPRAZOLE
     Route: 064
  3. OMEPRAZOLE. [Suspect]
     Active Substance: OMEPRAZOLE
     Indication: GASTROOESOPHAGEAL REFLUX DISEASE
     Dosage: ALTERNATING WITH PANTOPRAZOLE
     Route: 064
  4. OLMESARTAN [Suspect]
     Active Substance: OLMESARTAN
     Indication: ACCIDENTAL EXPOSURE TO PRODUCT
     Dosage: 40 [MG/D ]
     Route: 064
     Dates: start: 20171109, end: 20171116
  5. FEMIBION [Concomitant]
     Active Substance: VITAMINS
     Indication: PRODUCT USED FOR UNKNOWN INDICATION
     Dosage: 0.8 [MG / D (TO 0.4 MG / D)]
     Dates: start: 20170618, end: 20180327

REACTIONS (3)
  - Foetal exposure during pregnancy [Recovered/Resolved]
  - Congenital megaureter [Not Recovered/Not Resolved]
  - Pyelocaliectasis [Recovering/Resolving]

NARRATIVE: CASE EVENT DATE: 20180327
